FAERS Safety Report 19180555 (Version 4)
Quarter: 2021Q2

REPORT INFORMATION
  Report Type: Spontaneous
  Country: US (occurrence: US)
  Receive Date: 20210426
  Receipt Date: 20210623
  Transmission Date: 20210717
  Serious: Yes (Hospitalization, Other)
  Sender: FDA-Public Use
  Company Number: US-AMNEAL PHARMACEUTICALS-2021-AMRX-01349

PATIENT
  Age: 26 Year
  Sex: Female
  Weight: 136 kg

DRUGS (5)
  1. HYDROCODONE/ACETAMINOPHEN [Concomitant]
     Active Substance: ACETAMINOPHEN\HYDROCODONE
     Indication: ENDOMETRIOSIS
     Dosage: UNK
     Route: 065
     Dates: start: 20180717
  2. CALCIUM WITH VITAMIN D [CALCIUM CARBONATE;COLECALCIFEROL] [Concomitant]
     Indication: SUPPLEMENTATION THERAPY
     Dosage: 600 MILLIGRAM, DAILY
     Route: 048
     Dates: start: 20181201
  3. IBUPROFEN. [Concomitant]
     Active Substance: IBUPROFEN
     Indication: ENDOMETRIOSIS
     Dosage: UNK
     Route: 065
     Dates: start: 20180717
  4. ELAGOLIX [Suspect]
     Active Substance: ELAGOLIX
     Indication: ENDOMETRIOSIS
     Dosage: 200 MILLIGRAM, 2X/DAY
     Route: 048
     Dates: start: 20190828
  5. ACTIVELLA [Suspect]
     Active Substance: ESTRADIOL\NORETHINDRONE ACETATE
     Indication: ENDOMETRIOSIS
     Dosage: 1 DOSAGE FORM, DAILY
     Route: 048
     Dates: start: 20180925

REACTIONS (1)
  - COVID-19 pneumonia [Recovered/Resolved]

NARRATIVE: CASE EVENT DATE: 20210406
